FAERS Safety Report 12051226 (Version 2)
Quarter: 2016Q2

REPORT INFORMATION
  Report Type: Spontaneous
  Country: GB (occurrence: GB)
  Receive Date: 20160209
  Receipt Date: 20160505
  Transmission Date: 20160815
  Serious: Yes (Other)
  Sender: FDA-Public Use
  Company Number: PHFR2015GB009996

PATIENT
  Age: 31 Year
  Sex: Female

DRUGS (1)
  1. ZOMETA [Suspect]
     Active Substance: ZOLEDRONIC ACID
     Indication: PRODUCT USED FOR UNKNOWN INDICATION
     Dosage: UNK UNK, QMO
     Route: 065

REACTIONS (5)
  - Nausea [Unknown]
  - Metastasis [Unknown]
  - Dizziness [Recovering/Resolving]
  - Fatigue [Unknown]
  - Fall [Unknown]

NARRATIVE: CASE EVENT DATE: 20160202
